FAERS Safety Report 23363165 (Version 2)
Quarter: 2024Q1

REPORT INFORMATION
  Report Type: Spontaneous
  Country: LV (occurrence: LV)
  Receive Date: 20240103
  Receipt Date: 20240228
  Transmission Date: 20240409
  Serious: Yes (Other)
  Sender: FDA-Public Use
  Company Number: LV-ORGANON-O2401LVA000188

PATIENT
  Sex: Male

DRUGS (1)
  1. NASONEX [Suspect]
     Active Substance: MOMETASONE FUROATE
     Dosage: UNK
     Route: 045
     Dates: start: 2017

REACTIONS (8)
  - Lip and/or oral cavity cancer [Unknown]
  - Hyperthyroidism [Unknown]
  - Weight increased [Unknown]
  - Malaise [Unknown]
  - Asthenia [Unknown]
  - Pigmentation lip [Unknown]
  - Lip pain [Unknown]
  - Hormone level abnormal [Unknown]
